FAERS Safety Report 4908049-7 (Version None)
Quarter: 2006Q1

REPORT INFORMATION
  Report Type: 
  Country: None (occurrence: None)
  Receive Date: 20060210
  Receipt Date: 20060130
  Transmission Date: 20060701
  Serious: Yes (Hospitalization)
  Sender: FDA-Public Use
  Company Number: DE-ROCHE-434410

PATIENT
  Age: 50 Year
  Sex: Female

DRUGS (2)
  1. PEGASYS [Suspect]
     Indication: HEPATITIS C
     Route: 058
     Dates: start: 20040715, end: 20050615
  2. RIBAVIRIN [Suspect]
     Indication: HEPATITIS C
     Route: 048
     Dates: start: 20040715, end: 20050615

REACTIONS (17)
  - ARTHRALGIA [None]
  - ASTHENIA [None]
  - BLOOD COUNT ABNORMAL [None]
  - BREAST DISCOMFORT [None]
  - CHEST PAIN [None]
  - DEHYDRATION [None]
  - DYSPNOEA [None]
  - FATIGUE [None]
  - HERPES SIMPLEX [None]
  - MYALGIA [None]
  - NIGHT SWEATS [None]
  - OEDEMA [None]
  - PERICARDIAL EFFUSION [None]
  - PLEURAL HAEMORRHAGE [None]
  - POLYSEROSITIS [None]
  - PYREXIA [None]
  - WEIGHT DECREASED [None]
